FAERS Safety Report 5139509-4 (Version None)
Quarter: 2006Q4

REPORT INFORMATION
  Report Type: 
  Country: None (occurrence: None)
  Receive Date: 20061030
  Receipt Date: 20061024
  Transmission Date: 20070319
  Serious: Yes (Death, Other)
  Sender: FDA-Public Use
  Company Number: IL-ROXANE LABORATORIES, INC-2006-BP-12486RO

PATIENT
  Age: 62 Year
  Sex: Male

DRUGS (2)
  1. TAMOXIFEN CITRATE [Suspect]
     Indication: SCLEROSING ENCAPSULATING PERITONITIS
     Dosage: 40 MG/DAY
     Dates: start: 20040701, end: 20050201
  2. PREDNISONE TAB [Suspect]
     Indication: SCLEROSING ENCAPSULATING PERITONITIS
     Dosage: 40 MG (0.5 MG/KG)/DAY
     Dates: start: 20040701, end: 20050201

REACTIONS (7)
  - ABDOMINAL ADHESIONS [None]
  - CALCIPHYLAXIS [None]
  - DRUG INEFFECTIVE [None]
  - GANGRENE [None]
  - PENILE PAIN [None]
  - REFUSAL OF TREATMENT BY PATIENT [None]
  - URETHRAL DISCHARGE [None]
